FAERS Safety Report 5968985-X (Version None)
Quarter: 2008Q4

REPORT INFORMATION
  Report Type: 
  Country: None (occurrence: None)
  Receive Date: 20081125
  Receipt Date: 20081125
  Transmission Date: 20090506
  Serious: Yes (Other)
  Sender: FDA-Public Use
  Company Number: None

PATIENT
  Sex: Female
  Weight: 53 kg

DRUGS (1)
  1. ATIVAN [Suspect]
     Indication: PARTIAL SEIZURES
     Dosage: 2MG 1 TAB QID PRN PO
     Route: 048

REACTIONS (1)
  - DRUG INEFFECTIVE [None]
